FAERS Safety Report 4422962-9 (Version None)
Quarter: 2004Q3

REPORT INFORMATION
  Report Type: 
  Country: None (occurrence: None)
  Receive Date: 20040809
  Receipt Date: 20040809
  Transmission Date: 20050211
  Serious: No
  Sender: FDA-Public Use
  Company Number: None

PATIENT
  Age: 74 Year
  Sex: Male

DRUGS (2)
  1. GATIFLOXACIN [Suspect]
     Dosage: 200 IV QD
     Route: 042
  2. VANCOMYCIN [Suspect]
     Indication: CORONARY ARTERY SURGERY
     Dosage: 500 IV QD
     Route: 042

REACTIONS (2)
  - DRUG INEFFECTIVE [None]
  - RASH [None]
